FAERS Safety Report 4512718-0 (Version None)
Quarter: 2004Q4

REPORT INFORMATION
  Report Type: 
  Country: None (occurrence: None)
  Receive Date: 20041012
  Receipt Date: 20040723
  Transmission Date: 20050328
  Serious: No
  Sender: FDA-Public Use
  Company Number: A03200402488

PATIENT
  Age: 82 Year
  Sex: Male

DRUGS (5)
  1. UROXATRAL [Suspect]
     Indication: BLADDER OBSTRUCTION
     Dosage: 10 MG OD - ORAL
     Route: 048
     Dates: start: 20040521, end: 20040524
  2. CLONAZEPAM [Concomitant]
  3. DUONEB [Concomitant]
  4. PAROXETINE HYDROCHLORIDE [Concomitant]
  5. LEVOSALBUTAMOL [Concomitant]

REACTIONS (1)
  - OEDEMA PERIPHERAL [None]
